FAERS Safety Report 9701335 (Version 2)
Quarter: 2015Q3

REPORT INFORMATION
  Report Type: Spontaneous
  Country: US (occurrence: US)
  Receive Date: 20131121
  Receipt Date: 20150803
  Transmission Date: 20151125
  Serious: No
  Sender: FDA-Public Use
  Company Number: US-GILEAD-2008-0016457

PATIENT
  Age: 78 Year
  Sex: Female
  Weight: 90.26 kg

DRUGS (7)
  1. MAG-OX [Concomitant]
     Active Substance: MAGNESIUM OXIDE
     Route: 048
  2. LETAIRIS [Suspect]
     Active Substance: AMBRISENTAN
     Indication: PULMONARY ARTERIAL HYPERTENSION
     Route: 048
     Dates: start: 20070920
  3. COUMADIN [Concomitant]
     Active Substance: WARFARIN SODIUM
     Route: 048
  4. XANAX [Concomitant]
     Active Substance: ALPRAZOLAM
     Route: 048
  5. ALDACTONE [Concomitant]
     Active Substance: SPIRONOLACTONE
     Route: 048
  6. LASIX [Concomitant]
     Active Substance: FUROSEMIDE
     Route: 048
  7. K-DUR [Concomitant]
     Active Substance: POTASSIUM CHLORIDE
     Route: 048

REACTIONS (1)
  - Peripheral swelling [Unknown]
